FAERS Safety Report 9811727 (Version 1)
Quarter: 2014Q1

REPORT INFORMATION
  Report Type: Spontaneous
  Country: US (occurrence: US)
  Receive Date: 20140110
  Receipt Date: 20140110
  Transmission Date: 20141002
  Serious: Yes (Hospitalization)
  Sender: FDA-Public Use
  Company Number: US-SANOFI-AVENTIS-2013SA047417

PATIENT
  Age: 61 Year
  Sex: Male

DRUGS (36)
  1. PLAVIX [Suspect]
     Route: 048
     Dates: end: 2013
  2. ASPIRIN [Suspect]
     Route: 048
     Dates: start: 20120801, end: 2013
  3. COUMADIN [Suspect]
     Route: 048
     Dates: end: 2013
  4. BLINDED THERAPY [Concomitant]
     Indication: TYPE 2 DIABETES MELLITUS
     Route: 058
     Dates: start: 20121002, end: 20121015
  5. BLINDED THERAPY [Concomitant]
     Indication: TYPE 2 DIABETES MELLITUS
     Route: 058
     Dates: start: 20121016, end: 20130314
  6. OPTICLICK [Concomitant]
     Dates: start: 20120925
  7. CRESTOR [Concomitant]
     Dates: start: 20120815
  8. VALIUM [Concomitant]
     Dates: start: 20130125
  9. MULTIVITAMINS [Concomitant]
     Dates: start: 20100301
  10. BUPROPION [Concomitant]
     Dates: start: 20120921
  11. DESYREL [Concomitant]
     Dates: start: 20091130
  12. PEPCID [Concomitant]
     Dates: start: 20091130
  13. PAXIL [Concomitant]
     Dates: start: 2008
  14. TESTOSTERONE [Concomitant]
     Dates: start: 20120921
  15. ADDERALL XR [Concomitant]
     Dates: start: 20130214
  16. KLONOPIN [Concomitant]
     Dates: start: 20130214
  17. CLONIDINE [Concomitant]
     Dates: start: 20130313
  18. DUONEB [Concomitant]
     Dates: start: 20130313
  19. CIPROFLOXACIN [Concomitant]
     Dates: start: 20130401
  20. GLUCOTROL [Concomitant]
     Dates: start: 201110
  21. HUMULIN R [Concomitant]
     Dates: start: 20120815
  22. ANGIOTENSIN II ANTAGONISTS [Concomitant]
  23. BETA BLOCKING AGENTS [Concomitant]
  24. CALCIUM CHANNEL BLOCKERS [Concomitant]
  25. ORGANIC NITRATES [Concomitant]
  26. MULTAQ [Concomitant]
     Dates: start: 20111108
  27. DIGITALIS [Concomitant]
  28. BENICAR [Concomitant]
  29. NEBIVOLOL [Concomitant]
  30. NORVASC [Concomitant]
  31. LANOXIN [Concomitant]
  32. LISINOPRIL [Concomitant]
  33. COZAAR [Concomitant]
  34. KLOR-CON [Concomitant]
     Dates: start: 20091130
  35. FISH OIL [Concomitant]
     Dates: start: 20120531
  36. ULTRAM [Concomitant]
     Dates: start: 20120824

REACTIONS (1)
  - Gastrointestinal haemorrhage [Recovered/Resolved]
